FAERS Safety Report 21209706 (Version 1)
Quarter: 2022Q3

REPORT INFORMATION
  Report Type: Spontaneous
  Country: SE (occurrence: None)
  Receive Date: 20220813
  Receipt Date: 20220813
  Transmission Date: 20221027
  Serious: Yes (Hospitalization)
  Sender: FDA-Public Use
  Company Number: 2022A280609

PATIENT
  Age: 15 Year
  Sex: Female

DRUGS (11)
  1. QUETIAPINE [Suspect]
     Active Substance: QUETIAPINE
     Dosage: 25 MG DAILY WAS ADDED
     Route: 048
  2. QUETIAPINE [Suspect]
     Active Substance: QUETIAPINE
     Dosage: 75 MG DAILY
     Route: 048
  3. OLANZAPINE [Concomitant]
     Active Substance: OLANZAPINE
     Dosage: 2.5 MG DAILY
     Route: 065
  4. OLANZAPINE [Concomitant]
     Active Substance: OLANZAPINE
     Dosage: DOSAGE WAS INCREASED TO 5 MG DAILY.
     Route: 065
  5. PIPERACILLIN SODIUM\TAZOBACTAM SODIUM [Concomitant]
     Active Substance: PIPERACILLIN SODIUM\TAZOBACTAM SODIUM
     Indication: Pneumonia aspiration
     Route: 065
  6. CLARITHROMYCIN [Concomitant]
     Active Substance: CLARITHROMYCIN
     Indication: Pneumonia aspiration
     Route: 065
  7. DANTROLENE [Concomitant]
     Active Substance: DANTROLENE
  8. HALOPERIDOL [Concomitant]
     Active Substance: HALOPERIDOL
  9. BROMOCRIPTINE [Concomitant]
     Active Substance: BROMOCRIPTINE
  10. LORAZEPAM [Concomitant]
     Active Substance: LORAZEPAM
  11. CLONIDINE [Concomitant]
     Active Substance: CLONIDINE

REACTIONS (1)
  - Hyperthermia [Recovered/Resolved]
